FAERS Safety Report 9138858 (Version 1)
Quarter: 2013Q1

REPORT INFORMATION
  Report Type: Spontaneous
  Country: US (occurrence: US)
  Receive Date: 20130305
  Receipt Date: 20130305
  Transmission Date: 20140127
  Serious: No
  Sender: FDA-Public Use
  Company Number: US-PFIZER INC-2013076028

PATIENT
  Age: 53 Year
  Sex: Male
  Weight: 126.98 kg

DRUGS (5)
  1. NEURONTIN [Suspect]
     Indication: NEURALGIA
     Dosage: 1800 MG (THREE TABLETS OF 600MG), 3X/DAY
     Route: 048
     Dates: end: 2011
  2. NORCO [Concomitant]
     Indication: PAIN
     Dosage: UNK
  3. OXYCODONE [Concomitant]
     Indication: PAIN
     Dosage: UNK
  4. VICOPROFEN [Concomitant]
     Indication: PAIN
     Dosage: UNK
  5. PREDNISONE [Concomitant]
     Dosage: UNK

REACTIONS (2)
  - Intentional drug misuse [Unknown]
  - Drug ineffective [Unknown]
